FAERS Safety Report 22313827 (Version 6)
Quarter: 2023Q4

REPORT INFORMATION
  Report Type: Report from Study
  Country: TR (occurrence: None)
  Receive Date: 20230512
  Receipt Date: 20231020
  Transmission Date: 20240110
  Serious: Yes (Life-Threatening, Hospitalization)
  Sender: FDA-Public Use
  Company Number: TR-ROCHE-3347515

PATIENT
  Age: 70 Year
  Sex: Male
  Weight: 50 kg

DRUGS (49)
  1. MOSUNETUZUMAB [Suspect]
     Active Substance: MOSUNETUZUMAB
     Indication: Non-Hodgkin^s lymphoma
     Dosage: START DATE OF MOST RECENT DOSE (30 MG) OF STUDY DRUG PRIOR TO AE 13/DEC/2022  AT 12:45 PM- 3:55 PM
     Route: 042
     Dates: start: 20220121
  2. LENALIDOMIDE [Suspect]
     Active Substance: LENALIDOMIDE
     Indication: Non-Hodgkin^s lymphoma
     Dosage: START DATE OF MOST RECENT DOSE (5 MG) OF STUDY DRUG PRIOR TO AE: 28/JUL/2022-09/AUG/2022
     Route: 048
     Dates: start: 20220218
  3. NEXIUM [Concomitant]
     Active Substance: ESOMEPRAZOLE MAGNESIUM
     Route: 048
     Dates: start: 2012
  4. VALTREX [Concomitant]
     Active Substance: VALACYCLOVIR HYDROCHLORIDE
     Route: 048
     Dates: start: 20210813
  5. ALLOPURINOL [Concomitant]
     Active Substance: ALLOPURINOL
     Route: 048
     Dates: start: 20220426
  6. BELOC (TURKEY) [Concomitant]
     Route: 048
     Dates: start: 2012
  7. FENIRAMIN MALEAT [Concomitant]
     Route: 042
     Dates: start: 20220121
  8. ACETAMINOPHEN [Concomitant]
     Active Substance: ACETAMINOPHEN
     Route: 048
     Dates: start: 20220121
  9. GRONSIT [Concomitant]
     Route: 042
     Dates: start: 20220121
  10. DEKORT [Concomitant]
     Active Substance: DEXAMETHASONE
     Route: 042
     Dates: start: 20220121
  11. ASPIRIN [Concomitant]
     Active Substance: ASPIRIN
     Route: 048
     Dates: start: 20220630
  12. ISOTONIC SODIUM CHLORIDE SOLUTION [Concomitant]
     Active Substance: SODIUM CHLORIDE
     Route: 042
     Dates: start: 20230511, end: 20230522
  13. MEGACE [Concomitant]
     Active Substance: MEGESTROL ACETATE
     Indication: Decreased appetite
     Route: 048
     Dates: start: 20230427
  14. MEGACE [Concomitant]
     Active Substance: MEGESTROL ACETATE
     Indication: Weight decreased
  15. REMERON [Concomitant]
     Active Substance: MIRTAZAPINE
     Route: 048
     Dates: start: 20230428
  16. PLATELETS [Concomitant]
     Active Substance: HUMAN PLATELET, ALLOGENIC
     Dosage: 1 U
     Dates: start: 20210805
  17. ZOVIRAX [Concomitant]
     Active Substance: ACYCLOVIR
     Route: 042
     Dates: start: 20230509, end: 20230509
  18. ZOVIRAX [Concomitant]
     Active Substance: ACYCLOVIR
     Route: 042
     Dates: start: 20230510, end: 20230512
  19. METHYLPREDNISOLONE [Concomitant]
     Active Substance: METHYLPREDNISOLONE
     Route: 042
     Dates: start: 20230509, end: 20230509
  20. METHYLPREDNISOLONE [Concomitant]
     Active Substance: METHYLPREDNISOLONE
     Route: 042
     Dates: start: 20230512, end: 20230512
  21. POLINUTHREE EN 550 [Concomitant]
     Route: 042
     Dates: start: 20230509, end: 20230516
  22. PAROL [Concomitant]
     Active Substance: ACETAMINOPHEN
     Indication: Analgesic therapy
     Route: 042
     Dates: start: 20230509, end: 20230509
  23. PAROL [Concomitant]
     Active Substance: ACETAMINOPHEN
     Route: 048
     Dates: start: 20230512, end: 20230522
  24. NEOSET [GRANISETRON HYDROCHLORIDE] [Concomitant]
     Route: 042
     Dates: start: 20230509, end: 20230522
  25. POTASSIUM BICARBONATE\SODIUM ALGINATE [Concomitant]
     Active Substance: POTASSIUM BICARBONATE\SODIUM ALGINATE
     Route: 048
     Dates: start: 20230509, end: 20230510
  26. POTASSIUM BICARBONATE\SODIUM ALGINATE [Concomitant]
     Active Substance: POTASSIUM BICARBONATE\SODIUM ALGINATE
     Route: 048
     Dates: start: 20230510, end: 20230522
  27. FLUKOPOL [Concomitant]
     Route: 042
     Dates: start: 20230509, end: 20230511
  28. ESSIUM [Concomitant]
     Route: 042
     Dates: start: 20230509, end: 20230522
  29. ALANYL GLUTAMINE [Concomitant]
     Active Substance: ALANYL GLUTAMINE
     Route: 050
     Dates: start: 20230509, end: 20230516
  30. BEMIKS [Concomitant]
     Route: 042
     Dates: start: 20230509, end: 20230516
  31. PHENIRAMINE [Concomitant]
     Active Substance: PHENIRAMINE
     Route: 042
     Dates: start: 20230509, end: 20230521
  32. ISOTONIC SODIUM CHLORIDE SOLUTION [Concomitant]
     Active Substance: SODIUM CHLORIDE
     Route: 042
     Dates: start: 20230509, end: 20230509
  33. ALBUMIN HUMAN [Concomitant]
     Active Substance: ALBUMIN HUMAN
     Indication: Blood albumin decreased
     Dates: start: 20230510, end: 20230514
  34. LASIX [Concomitant]
     Active Substance: FUROSEMIDE
     Dates: start: 20230510, end: 20230514
  35. HALOPERIDOL [Concomitant]
     Active Substance: HALOPERIDOL
     Route: 042
     Dates: start: 20230510, end: 20230510
  36. POTASSIUM CHLORIDE [Concomitant]
     Active Substance: POTASSIUM CHLORIDE
     Route: 042
     Dates: start: 20230512, end: 20230514
  37. MAGNESIUM SULFATE [Concomitant]
     Active Substance: MAGNESIUM SULFATE
     Route: 042
     Dates: start: 20230512, end: 20230520
  38. TRAMOSEL [Concomitant]
     Route: 042
     Dates: start: 20230512, end: 20230513
  39. NOROGRIZOVIM [Concomitant]
     Route: 042
     Dates: start: 20230512, end: 20230517
  40. BACTRIM [Concomitant]
     Active Substance: SULFAMETHOXAZOLE\TRIMETHOPRIM
     Route: 042
     Dates: start: 20230512, end: 20230522
  41. AMBISOME [Concomitant]
     Active Substance: AMPHOTERICIN B
     Route: 042
     Dates: start: 20230512, end: 20230522
  42. ACYCLOVIR [Concomitant]
     Active Substance: ACYCLOVIR
     Route: 042
     Dates: start: 20230514, end: 20230524
  43. SUCRALFATE [Concomitant]
     Active Substance: SUCRALFATE
     Route: 048
     Dates: start: 20230509, end: 20230522
  44. DEXTROSE [Concomitant]
     Active Substance: DEXTROSE\DEXTROSE MONOHYDRATE
     Route: 042
     Dates: start: 20230512, end: 20230522
  45. CALCIUM [Concomitant]
     Active Substance: CALCIUM
     Route: 042
     Dates: start: 20230512, end: 20230522
  46. ISOTONIC SODIUM CHLORIDE SOLUTION [Concomitant]
     Active Substance: SODIUM CHLORIDE
     Route: 042
     Dates: start: 20230513, end: 20230520
  47. LANOLIN\ZINC OXIDE [Concomitant]
     Active Substance: LANOLIN\ZINC OXIDE
     Route: 061
     Dates: start: 20230517, end: 20230522
  48. TAZERACIN [Concomitant]
     Route: 042
     Dates: start: 20230511, end: 20230514
  49. FILGRASTIM [Concomitant]
     Active Substance: FILGRASTIM
     Indication: Neutropenia
     Route: 058
     Dates: start: 20230511, end: 20230522

REACTIONS (1)
  - Oesophageal candidiasis [Recovered/Resolved]

NARRATIVE: CASE EVENT DATE: 20230509
